FAERS Safety Report 7623513 (Version 4)
Quarter: 2012Q4

REPORT INFORMATION
  Report Type: Report from Study
  Country: US (occurrence: US)
  Receive Date: 20101011
  Receipt Date: 20121106
  Transmission Date: 20130627
  Serious: Yes (Life-Threatening, Hospitalization)
  Sender: FDA-Public Use
  Company Number: US-BAXTER-2010BH025223

PATIENT
  Age: 76 Year
  Sex: Female
  Weight: 64 kg

DRUGS (8)
  1. ARICEPT [Concomitant]
     Indication: ALZHEIMER^S DISEASE
     Route: 048
     Dates: start: 20090915
  2. MULTIVITAMINS [Concomitant]
     Indication: SUPPLEMENTATION THERAPY
     Route: 048
     Dates: start: 2009
  3. OMEGA 3 [Concomitant]
     Indication: SUPPLEMENTATION THERAPY
     Route: 048
     Dates: start: 2009
  4. COMBINATIONS OF VITAMINS1 [Concomitant]
     Indication: SUPPLEMENTATION THERAPY
     Route: 048
     Dates: start: 2009
  5. LUTEIN [Concomitant]
     Indication: SUPPLEMENTATION THERAPY
     Route: 048
     Dates: start: 2009
  6. AMLODIPINE [Concomitant]
     Indication: HYPERTENSION
     Route: 048
     Dates: start: 20100612
  7. GAMMAGARD LIQUID [Suspect]
     Indication: ALZHEIMER^S DISEASE
     Route: 042
     Dates: start: 20101006, end: 20101006
  8. GAMMAGARD LIQUID [Suspect]
     Route: 042
     Dates: start: 20100827, end: 20101006

REACTIONS (1)
  - Syncope [Recovered/Resolved]
